FAERS Safety Report 5321095-7 (Version None)
Quarter: 2007Q2

REPORT INFORMATION
  Report Type: 
  Country: None (occurrence: None)
  Receive Date: 20070510
  Receipt Date: 20070430
  Transmission Date: 20071010
  Serious: Yes (Hospitalization, Disabling, Other)
  Sender: FDA-Public Use
  Company Number: PHMT2007CA00814

PATIENT
  Age: 53 Year
  Sex: Male

DRUGS (7)
  1. CLOZARIL [Suspect]
     Indication: SCHIZOAFFECTIVE DISORDER
     Dosage: 200 MG QHS
     Route: 048
     Dates: start: 20040511, end: 20061126
  2. VALPROIC ACID [Concomitant]
  3. OLANZAPINE [Concomitant]
  4. DURALITH [Concomitant]
     Dosage: 450 MG BID
     Route: 048
  5. CRESTOR [Concomitant]
     Dosage: 10 MG, QD
     Route: 048
  6. RISPERIDONE [Concomitant]
     Dosage: 1.5 MG BID
  7. DITROPAN [Concomitant]
     Dosage: 5 MG, QHS

REACTIONS (6)
  - ACTIVITIES OF DAILY LIVING IMPAIRED [None]
  - AGITATION [None]
  - CONFUSIONAL STATE [None]
  - DELIRIUM [None]
  - FEAR [None]
  - URINARY INCONTINENCE [None]
